FAERS Safety Report 5960533-3 (Version None)
Quarter: 2008Q4

REPORT INFORMATION
  Report Type: 
  Country: None (occurrence: None)
  Receive Date: 20081120
  Receipt Date: 20080527
  Transmission Date: 20090506
  Serious: No
  Sender: FDA-Public Use
  Company Number: US-ABBOTT-08P-163-0453506-00

PATIENT
  Sex: Male
  Weight: 95.34 kg

DRUGS (5)
  1. BIAXIN [Suspect]
     Indication: DRUG USE FOR UNKNOWN INDICATION
     Route: 048
     Dates: start: 20061201
  2. DEXAMETHASONE [Interacting]
     Indication: DRUG USE FOR UNKNOWN INDICATION
     Dosage: 5 TABS, DURING SECOND WEEK
     Route: 048
     Dates: start: 20080527
  3. DEXAMETHASONE [Interacting]
     Dosage: 4 TABS, DURING SECOND WEEK
  4. REVILMIDE [Concomitant]
     Indication: MULTIPLE MYELOMA
     Dates: start: 20061201
  5. REVILMIDE [Concomitant]

REACTIONS (4)
  - DRUG INTERACTION [None]
  - GAIT DISTURBANCE [None]
  - NEUROPATHY PERIPHERAL [None]
  - TREMOR [None]
